FAERS Safety Report 11904748 (Version 1)
Quarter: 2016Q1

REPORT INFORMATION
  Report Type: Spontaneous
  Country: US (occurrence: US)
  Receive Date: 20160108
  Receipt Date: 20160108
  Transmission Date: 20160526
  Serious: Yes (Other)
  Sender: FDA-Public Use
  Company Number: US-ROCHE-1209399

PATIENT
  Age: 19 Year
  Sex: Male

DRUGS (6)
  1. RETEPLASE [Suspect]
     Active Substance: RETEPLASE
     Indication: ISCHAEMIC STROKE
     Route: 013
  2. WARFARIN [Concomitant]
     Active Substance: WARFARIN
  3. ACTILYSE [Suspect]
     Active Substance: ALTEPLASE
     Indication: ISCHAEMIC STROKE
     Route: 042
  4. ENOXAPARIN [Concomitant]
     Active Substance: ENOXAPARIN
     Route: 058
  5. ASPIRIN. [Concomitant]
     Active Substance: ASPIRIN
  6. HEPARIN [Concomitant]
     Active Substance: HEPARIN SODIUM
     Route: 042

REACTIONS (2)
  - Drug ineffective [Unknown]
  - Basal ganglia infarction [Unknown]
